FAERS Safety Report 5404409-9 (Version None)
Quarter: 2007Q3

REPORT INFORMATION
  Report Type: 
  Country: None (occurrence: None)
  Receive Date: 20070802
  Receipt Date: 20070725
  Transmission Date: 20080115
  Serious: Yes (Other)
  Sender: FDA-Public Use
  Company Number: GB-PFIZER INC-2007056235

PATIENT
  Age: 62 Year
  Sex: Female
  Weight: 70 kg

DRUGS (1)
  1. XALATAN [Suspect]
     Route: 047

REACTIONS (7)
  - ERYTHEMA [None]
  - EYE PAIN [None]
  - FACIAL PAIN [None]
  - MEDICATION ERROR [None]
  - OCULAR HYPERAEMIA [None]
  - OVERDOSE [None]
  - SWELLING FACE [None]
